FAERS Safety Report 8463206-0 (Version None)
Quarter: 2012Q2

REPORT INFORMATION
  Report Type: 
  Country: None (occurrence: None)
  Receive Date: 20120625
  Receipt Date: 20120619
  Transmission Date: 20120825
  Serious: Yes (Other)
  Sender: FDA-Public Use
  Company Number: US-PFIZER INC-2012148468

PATIENT
  Sex: Male

DRUGS (2)
  1. DETROL LA [Suspect]
     Indication: PROSTATE CANCER
     Dosage: UNK
     Dates: start: 20080101
  2. OXYBUTYNIN [Suspect]
     Dosage: UNK
     Dates: start: 20120501

REACTIONS (1)
  - COGNITIVE DISORDER [None]
